FAERS Safety Report 4660631-0 (Version None)
Quarter: 2005Q2

REPORT INFORMATION
  Report Type: 
  Country: None (occurrence: None)
  Receive Date: 20050512
  Receipt Date: 20050314
  Transmission Date: 20051028
  Serious: Yes (Hospitalization)
  Sender: FDA-Public Use
  Company Number: JP-BRISTOL-MYERS SQUIBB COMPANY-12898482

PATIENT
  Age: 35 Year
  Sex: Female

DRUGS (2)
  1. TAXOL [Suspect]
     Indication: PERITONEAL CARCINOMA
     Route: 042
     Dates: start: 20040203, end: 20040203
  2. CARBOMERCK [Suspect]
     Indication: PERITONEAL CARCINOMA
     Dosage: AUC=5
     Route: 042
     Dates: start: 20040203, end: 20040203

REACTIONS (3)
  - BONE MARROW DEPRESSION [None]
  - HEPATIC CIRRHOSIS [None]
  - VARICES OESOPHAGEAL [None]
